FAERS Safety Report 5703184-8 (Version None)
Quarter: 2008Q2

REPORT INFORMATION
  Report Type: 
  Country: None (occurrence: None)
  Receive Date: 20080411
  Receipt Date: 20080317
  Transmission Date: 20081010
  Serious: No
  Sender: FDA-Public Use
  Company Number: US-BAYER-200817332NA

PATIENT
  Age: 40 Year
  Sex: Female
  Weight: 57 kg

DRUGS (2)
  1. YAZ [Suspect]
     Indication: CONTRACEPTION
     Route: 048
     Dates: start: 20080201, end: 20080301
  2. ANTIBIOTIC NOS [Concomitant]
     Indication: URINARY TRACT INFECTION
     Dates: start: 20080313

REACTIONS (3)
  - FATIGUE [None]
  - HEADACHE [None]
  - MENORRHAGIA [None]
